FAERS Safety Report 9383428 (Version 1)
Quarter: 2013Q3

REPORT INFORMATION
  Report Type: Report from Study
  Country: FR (occurrence: FR)
  Receive Date: 20130704
  Receipt Date: 20130704
  Transmission Date: 20140515
  Serious: Yes (Other)
  Sender: FDA-Public Use
  Company Number: FR-ROCHE-1244990

PATIENT
  Sex: 0

DRUGS (1)
  1. RITUXIMAB [Suspect]
     Indication: POLYNEUROPATHY
     Route: 065

REACTIONS (1)
  - Tibia fracture [Unknown]
